FAERS Safety Report 21470800 (Version 1)
Quarter: 2022Q4

REPORT INFORMATION
  Report Type: Spontaneous
  Country: FR (occurrence: FR)
  Receive Date: 20221018
  Receipt Date: 20221018
  Transmission Date: 20230113
  Serious: Yes (Hospitalization)
  Sender: FDA-Public Use
  Company Number: None

PATIENT
  Age: 10 Month
  Sex: Male

DRUGS (2)
  1. DABRAFENIB [Suspect]
     Active Substance: DABRAFENIB
     Indication: Optic glioma
     Dosage: 50 MG, QD (25 MG X2/J)
     Route: 048
     Dates: start: 20200725
  2. TRAMETINIB [Suspect]
     Active Substance: TRAMETINIB
     Indication: Optic glioma
     Dosage: 0.3 MG, QD (0.3 MG/J)
     Route: 048
     Dates: start: 20200725

REACTIONS (1)
  - Pyrexia [Recovered/Resolved]

NARRATIVE: CASE EVENT DATE: 20200831
